FAERS Safety Report 17191682 (Version 1)
Quarter: 2019Q4

REPORT INFORMATION
  Report Type: Spontaneous
  Country: DE (occurrence: DE)
  Receive Date: 20191223
  Receipt Date: 20191223
  Transmission Date: 20200122
  Serious: Yes (Death, Hospitalization, Other)
  Sender: FDA-Public Use
  Company Number: DE-B.I. PHARMACEUTICALS,INC./RIDGEFIELD-2019-BI-121239

PATIENT
  Age: 79 Year
  Weight: 85 kg

DRUGS (7)
  1. L-THYROXIN [LEVOTHYROXINE] [Concomitant]
     Active Substance: LEVOTHYROXINE SODIUM
     Indication: THYROIDECTOMY
     Route: 065
  2. AMIODARONE [Concomitant]
     Active Substance: AMIODARONE
     Indication: PRODUCT USED FOR UNKNOWN INDICATION
     Route: 048
  3. PANTOPRAZOL [PANTOPRAZOLE] [Concomitant]
     Active Substance: PANTOPRAZOLE
     Route: 065
  4. ACTRAPID [Concomitant]
     Active Substance: INSULIN HUMAN
     Indication: TYPE 2 DIABETES MELLITUS
     Route: 065
  5. PRADAXA [Suspect]
     Active Substance: DABIGATRAN ETEXILATE MESYLATE
     Indication: PRODUCT USED FOR UNKNOWN INDICATION
     Route: 065
  6. LEVEMIR [Concomitant]
     Active Substance: INSULIN DETEMIR
     Indication: TYPE 2 DIABETES MELLITUS
     Route: 058
  7. CALCIUM [Concomitant]
     Active Substance: CALCIUM
     Indication: PRODUCT USED FOR UNKNOWN INDICATION
     Route: 048

REACTIONS (16)
  - Hemiparesis [Unknown]
  - General physical health deterioration [Unknown]
  - Blood loss anaemia [Unknown]
  - Somnolence [Unknown]
  - Hypercoagulation [Fatal]
  - Carotid artery dissection [Fatal]
  - Duodenal neoplasm [Unknown]
  - Facial paresis [Unknown]
  - Cerebral artery occlusion [Unknown]
  - Carotid artery thrombosis [Fatal]
  - Dysphagia [Unknown]
  - Haemoglobin decreased [Unknown]
  - Carotid artery stenosis [Unknown]
  - Dyspnoea [Unknown]
  - Carotid artery occlusion [Unknown]
  - Dysarthria [Unknown]

NARRATIVE: CASE EVENT DATE: 20191023
